FAERS Safety Report 14282395 (Version 1)
Quarter: 2017Q4

REPORT INFORMATION
  Report Type: Spontaneous
  Country: JP (occurrence: JP)
  Receive Date: 20171213
  Receipt Date: 20171213
  Transmission Date: 20180321
  Serious: Yes (Other)
  Sender: FDA-Public Use
  Company Number: JP-ASTRAZENECA-2017SE72721

PATIENT
  Sex: Female

DRUGS (1)
  1. TAGRISSO [Suspect]
     Active Substance: OSIMERTINIB
     Indication: NON-SMALL CELL LUNG CANCER
     Route: 048
     Dates: start: 20170603

REACTIONS (17)
  - Cancer pain [Unknown]
  - Eczema [Unknown]
  - Pyrexia [Recovered/Resolved]
  - Hypohidrosis [Unknown]
  - Paronychia [Unknown]
  - Dysgeusia [Unknown]
  - Lung consolidation [Unknown]
  - Gait disturbance [Unknown]
  - Metastases to spine [Unknown]
  - Body temperature increased [Unknown]
  - Paraesthesia oral [Unknown]
  - Drug ineffective [Unknown]
  - Sneezing [Unknown]
  - Cough [Unknown]
  - Eyelid oedema [Unknown]
  - Chest pain [Unknown]
  - Cell marker increased [Unknown]

NARRATIVE: CASE EVENT DATE: 2017
